FAERS Safety Report 6529002-6 (Version None)
Quarter: 2009Q4

REPORT INFORMATION
  Report Type: 
  Country: None (occurrence: None)
  Receive Date: 20091230
  Receipt Date: 20091215
  Transmission Date: 20100525
  Serious: Yes (Hospitalization)
  Sender: FDA-Public Use
  Company Number: WAES 0912HKG00003

PATIENT
  Age: 64 Year
  Sex: Male

DRUGS (6)
  1. PRINIVIL [Suspect]
     Dates: start: 20061208
  2. MODURETIC 5-50 [Suspect]
  3. GLICLAZIDE [Concomitant]
  4. METFORMIN HCL [Concomitant]
  5. METOPROLOL TARTRATE [Concomitant]
  6. PROCHLORPERAZINE MALEATE [Concomitant]

REACTIONS (6)
  - BLOOD PRESSURE INCREASED [None]
  - CEREBROVASCULAR ACCIDENT [None]
  - DIZZINESS [None]
  - HAEMORRHAGE [None]
  - HYPERKALAEMIA [None]
  - NECK PAIN [None]
